FAERS Safety Report 7094639-5 (Version None)
Quarter: 2010Q4

REPORT INFORMATION
  Report Type: 
  Country: None (occurrence: None)
  Receive Date: 20101110
  Receipt Date: 20101104
  Transmission Date: 20110411
  Serious: Yes (Hospitalization)
  Sender: FDA-Public Use
  Company Number: FR-PFIZER INC-2010129730

PATIENT
  Age: 22 Year
  Sex: Female

DRUGS (9)
  1. NEURONTIN [Suspect]
     Indication: OPTIC NEUROPATHY
     Dosage: 800 MG, 2X/DAY
     Route: 048
     Dates: start: 19960101
  2. TOPIRAMATE [Suspect]
     Indication: OPTIC NEUROPATHY
     Dosage: 200 MG, 2X/DAY
     Route: 048
     Dates: start: 20000101
  3. LACOSAMIDE [Suspect]
     Indication: OPTIC NEUROPATHY
     Dosage: 100 MG, 2X/DAY
     Route: 048
     Dates: start: 20091101, end: 20100528
  4. LACOSAMIDE [Suspect]
     Dosage: 50 MG, 2X/DAY
     Route: 048
     Dates: start: 20100705
  5. TEGRETOL [Suspect]
     Dosage: UNK
     Route: 048
     Dates: start: 19960101, end: 20000101
  6. TEGELINE [Suspect]
     Dosage: 10G/ 200ML; 2X/DAY
     Route: 042
     Dates: start: 20030101
  7. URBANYL [Concomitant]
     Dosage: UNK
     Route: 048
     Dates: start: 20000101, end: 20090101
  8. LAMICTAL [Concomitant]
     Dosage: UNK
     Route: 048
     Dates: start: 19960101, end: 19990101
  9. RIVOTRIL [Concomitant]
     Dosage: 4 DF, 1X/DAY
     Route: 048
     Dates: start: 20090901, end: 20091101

REACTIONS (1)
  - OPTIC NEUROPATHY [None]
